FAERS Safety Report 9288696 (Version 1)
Quarter: 2013Q2

REPORT INFORMATION
  Report Type: Spontaneous
  Country: DE (occurrence: DE)
  Receive Date: 20130514
  Receipt Date: 20130514
  Transmission Date: 20140414
  Serious: Yes (Other)
  Sender: FDA-Public Use
  Company Number: DE-MYLANLABS-2013S1009978

PATIENT
  Age: 31 Year
  Sex: Female
  Weight: 56 kg

DRUGS (5)
  1. AMITRIPTYLIN [Suspect]
     Indication: PAIN
     Dosage: 75 [MG/D (BIS 25) ]/ SINCE 12/2009, FROM GW 25 REDUCED TO 50 AND 25 MG/D; STOPPED AT GW 28
     Route: 048
     Dates: start: 200912
  2. AMITRIPTYLIN [Suspect]
     Indication: PAIN
     Route: 048
  3. AMITRIPTYLIN [Suspect]
     Indication: PAIN
     Route: 048
  4. PARACETAMOL [Concomitant]
     Indication: PAIN
     Dosage: 500 [MG/D (B.BED.) ]/ AS NEEDED, CIRCA ONCE A WEEK
     Route: 048
  5. FEMIBION [Concomitant]
     Indication: PROPHYLAXIS OF NEURAL TUBE DEFECT
     Dosage: 0.4 [MG/D ]/ AND PRECONCEPTIONAL
     Route: 048
     Dates: end: 20120920

REACTIONS (3)
  - Exposure during pregnancy [Recovered/Resolved]
  - Haemorrhage in pregnancy [Unknown]
  - Sinusitis [Unknown]
